FAERS Safety Report 10255663 (Version 1)
Quarter: 2014Q2

REPORT INFORMATION
  Report Type: Spontaneous
  Country: US (occurrence: US)
  Receive Date: 20140624
  Receipt Date: 20140624
  Transmission Date: 20141212
  Serious: No
  Sender: FDA-Public Use
  Company Number: US-GILEAD-2014-0105657

PATIENT
  Sex: Female

DRUGS (1)
  1. SOVALDI [Suspect]
     Indication: HEPATITIS C
     Dosage: HALF PILL, QD
     Route: 048

REACTIONS (3)
  - Product size issue [Unknown]
  - Wrong technique in drug usage process [Unknown]
  - Viral test positive [Unknown]
